FAERS Safety Report 6734095-7 (Version None)
Quarter: 2010Q2

REPORT INFORMATION
  Report Type: 
  Country: None (occurrence: None)
  Receive Date: 20100520
  Receipt Date: 20100512
  Transmission Date: 20101027
  Serious: Yes (Hospitalization)
  Sender: FDA-Public Use
  Company Number: JP-MERCK-1003USA02240

PATIENT
  Age: 27 Year
  Sex: Male
  Weight: 101 kg

DRUGS (13)
  1. SINGULAIR [Suspect]
     Route: 048
     Dates: start: 20100118, end: 20100120
  2. MUCOSOLVAN [Concomitant]
     Route: 048
     Dates: start: 20100112, end: 20100119
  3. SULBACILLIN [Suspect]
     Indication: PNEUMONIA
     Route: 042
     Dates: start: 20100112, end: 20100118
  4. MUCODYNE [Concomitant]
     Route: 048
     Dates: start: 20100112, end: 20100119
  5. INTAL [Concomitant]
     Route: 055
     Dates: start: 20100112, end: 20100119
  6. DECADRON [Concomitant]
     Route: 042
     Dates: start: 20100112, end: 20100116
  7. MEPTIN [Concomitant]
     Route: 055
  8. UNIPHYL LA [Concomitant]
     Route: 048
     Dates: start: 20100118, end: 20100120
  9. MEDICON [Concomitant]
     Route: 048
     Dates: start: 20100112, end: 20100119
  10. ACTIT [Concomitant]
     Route: 042
  11. LACTEC [Concomitant]
     Route: 042
     Dates: start: 20100112, end: 20100118
  12. ADOAIR [Concomitant]
     Route: 055
     Dates: start: 20100116
  13. TAKEPRON [Concomitant]
     Route: 048
     Dates: start: 20100114, end: 20100120

REACTIONS (1)
  - DRUG ERUPTION [None]
